FAERS Safety Report 10070116 (Version 2)
Quarter: 2014Q2

REPORT INFORMATION
  Report Type: Spontaneous
  Country: AU (occurrence: None)
  Receive Date: 20140408
  Receipt Date: 20140417
  Transmission Date: 20141212
  Serious: No
  Sender: FDA-Public Use
  Company Number: 2014AP002419

PATIENT
  Sex: 0

DRUGS (3)
  1. LAMOTRIGINE [Suspect]
     Route: 064
  2. CARBAMAZEPINE [Suspect]
     Route: 064
  3. VALPROATE [Suspect]
     Dosage: TRANSPLACENTAL.

REACTIONS (6)
  - Abdominal transposition [None]
  - Maternal drugs affecting foetus [None]
  - Tracheo-oesophageal fistula [None]
  - Cardiac septal defect [None]
  - Foetal exposure during pregnancy [None]
  - Foetal malformation [None]
